FAERS Safety Report 7479884-9 (Version None)
Quarter: 2011Q2

REPORT INFORMATION
  Report Type: 
  Country: None (occurrence: None)
  Receive Date: 20110515
  Receipt Date: 20100419
  Transmission Date: 20111010
  Serious: No
  Sender: FDA-Public Use
  Company Number: US-NOVEN-ALL1-2010-02321

PATIENT

DRUGS (4)
  1. DAYTRANA [Suspect]
     Dosage: 10 MG, 1X/DAY:QD
     Route: 062
     Dates: start: 20100318, end: 20100330
  2. FOCALIN [Concomitant]
     Dosage: 10 MG, 1X/DAY:QD
     Route: 048
     Dates: start: 20090101, end: 20100301
  3. ZYRTEC [Concomitant]
     Dosage: 10 MG, 1X/DAY:QD
     Route: 048
  4. NASONEX [Concomitant]
     Dosage: UNK MG, AS REQ'D
     Route: 045

REACTIONS (2)
  - NEGATIVE THOUGHTS [None]
  - PRODUCT QUALITY ISSUE [None]
